FAERS Safety Report 24378521 (Version 1)
Quarter: 2024Q3

REPORT INFORMATION
  Report Type: Spontaneous
  Country: US (occurrence: US)
  Receive Date: 20240930
  Receipt Date: 20240930
  Transmission Date: 20241017
  Serious: Yes (Death, Other)
  Sender: AMGEN
  Company Number: US-AMGEN-USASP2024192029

PATIENT

DRUGS (8)
  1. PREDNISONE [Suspect]
     Active Substance: PREDNISONE
     Indication: Immunosuppressant drug therapy
     Dosage: UNK
     Route: 065
  2. TACROLIMUS [Concomitant]
     Active Substance: TACROLIMUS
     Indication: Immunosuppressant drug therapy
     Dosage: UNK
  3. MYCOPHENOLATE MOFETIL [Concomitant]
     Active Substance: MYCOPHENOLATE MOFETIL
     Indication: Immunosuppressant drug therapy
  4. POSACONAZOLE [Concomitant]
     Active Substance: POSACONAZOLE
     Indication: Immunosuppressant drug therapy
     Dosage: UNK
  5. FLUCONAZOLE [Concomitant]
     Active Substance: FLUCONAZOLE
     Indication: Immunosuppressant drug therapy
  6. ISAVUCONAZOLE [Concomitant]
     Active Substance: ISAVUCONAZOLE
     Indication: Immunosuppressant drug therapy
  7. ALBENDAZOLE [Concomitant]
     Active Substance: ALBENDAZOLE
     Indication: Immunosuppressant drug therapy
  8. AMPHOTERICIN B [Concomitant]
     Active Substance: AMPHOTERICIN B
     Indication: Immunosuppressant drug therapy

REACTIONS (17)
  - Mucormycosis [Fatal]
  - Death [Fatal]
  - Abdominal infection [Fatal]
  - Disseminated mucormycosis [Fatal]
  - Sinusitis fungal [Fatal]
  - Pneumonia fungal [Fatal]
  - Transplant failure [Fatal]
  - Rhinocerebral mucormycosis [Fatal]
  - Graft versus host disease [Unknown]
  - Transplant rejection [Unknown]
  - Aspergillus infection [Unknown]
  - Atypical mycobacterial infection [Unknown]
  - Bacteraemia [Unknown]
  - Cytomegalovirus test positive [Unknown]
  - Fungal skin infection [Unknown]
  - Soft tissue infection [Unknown]
  - Coronavirus infection [Unknown]
